FAERS Safety Report 20068089 (Version 1)
Quarter: 2021Q4

REPORT INFORMATION
  Report Type: Spontaneous
  Country: US (occurrence: None)
  Receive Date: 20211115
  Receipt Date: 20211115
  Transmission Date: 20220303
  Serious: Yes (Death, Other)
  Sender: FDA-Public Use
  Company Number: US-MICRO LABS LIMITED-ML2021-03320

PATIENT
  Age: 15 Year
  Sex: Male

DRUGS (1)
  1. DIPHENHYDRAMINE HYDROCHLORIDE [Suspect]
     Active Substance: DIPHENHYDRAMINE HYDROCHLORIDE

REACTIONS (12)
  - Arrhythmia [Fatal]
  - Depressed level of consciousness [Fatal]
  - Delirium [Fatal]
  - Metabolic acidosis [Fatal]
  - Coma [Fatal]
  - Electrocardiogram QRS complex prolonged [Fatal]
  - Anion gap [Fatal]
  - Leukocytosis [Fatal]
  - Rhabdomyolysis [Fatal]
  - Toxicity to various agents [Fatal]
  - Tachycardia [Fatal]
  - Seizure [Fatal]
